FAERS Safety Report 4536082-6 (Version None)
Quarter: 2004Q4

REPORT INFORMATION
  Report Type: 
  Country: None (occurrence: None)
  Receive Date: 20041214
  Receipt Date: 20041101
  Transmission Date: 20050328
  Serious: Yes (Hospitalization, Other)
  Sender: FDA-Public Use
  Company Number: 2004228168US

PATIENT
  Age: 45 Year
  Sex: Female
  Weight: 68 kg

DRUGS (3)
  1. XANAX [Suspect]
     Indication: POST-TRAUMATIC STRESS DISORDER
     Dosage: 1 MG, QID
     Dates: start: 20010101, end: 20040804
  2. ATENOLOL [Concomitant]
  3. LEXAPRO [Concomitant]

REACTIONS (2)
  - DRUG TOLERANCE [None]
  - DRUG WITHDRAWAL SYNDROME [None]
